FAERS Safety Report 16313604 (Version 1)
Quarter: 2019Q2

REPORT INFORMATION
  Report Type: Spontaneous
  Country: US (occurrence: US)
  Receive Date: 20190515
  Receipt Date: 20190515
  Transmission Date: 20190711
  Serious: Yes (Other)
  Sender: FDA-Public Use
  Company Number: US-BAYER-2019-095488

PATIENT
  Age: 60 Year
  Sex: Female

DRUGS (1)
  1. MIRENA [Suspect]
     Active Substance: LEVONORGESTREL
     Indication: ENDOMETRIAL HYPERPLASIA
     Dosage: 20 MCG/24HR, CONT
     Route: 015

REACTIONS (6)
  - Off label use of device [None]
  - Post procedural haematoma [None]
  - Therapeutic product effective for unapproved indication [None]
  - Device use issue [None]
  - Contraindicated device used [None]
  - Acute kidney injury [None]
